FAERS Safety Report 12438164 (Version 3)
Quarter: 2016Q3

REPORT INFORMATION
  Report Type: Spontaneous
  Country: US (occurrence: US)
  Receive Date: 20160606
  Receipt Date: 20160711
  Transmission Date: 20161109
  Serious: No
  Sender: FDA-Public Use
  Company Number: US-BIOGEN-2016BI00238682

PATIENT
  Sex: Female

DRUGS (4)
  1. AVONEX [Suspect]
     Active Substance: INTERFERON BETA-1A
     Route: 030
     Dates: start: 20120413, end: 20160606
  2. TECFIDERA [Suspect]
     Active Substance: DIMETHYL FUMARATE
     Indication: MULTIPLE SCLEROSIS
     Route: 048
     Dates: start: 20140917
  3. AVONEX [Suspect]
     Active Substance: INTERFERON BETA-1A
     Indication: MULTIPLE SCLEROSIS
     Route: 030
     Dates: start: 20110507, end: 20120127
  4. TECFIDERA [Suspect]
     Active Substance: DIMETHYL FUMARATE
     Route: 065
     Dates: start: 20140918

REACTIONS (20)
  - Hypoaesthesia [Not Recovered/Not Resolved]
  - Intestinal haemorrhage [Unknown]
  - Central nervous system lesion [Unknown]
  - Muscular weakness [Unknown]
  - Amnesia [Unknown]
  - Peripheral swelling [Recovered/Resolved]
  - Speech disorder [Unknown]
  - Loss of control of legs [Unknown]
  - Dysstasia [Unknown]
  - Vision blurred [Unknown]
  - Agraphia [Unknown]
  - Confusional state [Not Recovered/Not Resolved]
  - Swelling face [Recovered/Resolved]
  - Peroneal nerve palsy [Unknown]
  - Motor dysfunction [Unknown]
  - Depression [Recovered/Resolved]
  - Logorrhoea [Not Recovered/Not Resolved]
  - Rash [Unknown]
  - Gait disturbance [Not Recovered/Not Resolved]
  - Mental impairment [Unknown]
